FAERS Safety Report 13210869 (Version 1)
Quarter: 2017Q1

REPORT INFORMATION
  Report Type: Spontaneous
  Country: US (occurrence: US)
  Receive Date: 20170209
  Receipt Date: 20170209
  Transmission Date: 20170428
  Serious: Yes (Life-Threatening, Hospitalization, Disabling, Other)
  Sender: FDA-Public Use
  Company Number: None

PATIENT
  Age: 23 Year
  Sex: Female
  Weight: 90.9 kg

DRUGS (11)
  1. DASETTA 1/35 [Suspect]
     Active Substance: ETHINYL ESTRADIOL\NORETHINDRONE
     Indication: CONTRACEPTION
     Dosage: ?          QUANTITY:1 TABLET(S);?
     Route: 048
     Dates: start: 20160316, end: 20170208
  2. FLORASTOR [Concomitant]
     Active Substance: SACCHAROMYCES CEREVISIAE
  3. BLUE HERON DETOXIFYING COMPLEX [Concomitant]
  4. COLACE [Concomitant]
     Active Substance: DOCUSATE SODIUM
  5. XARELTO [Concomitant]
     Active Substance: RIVAROXABAN
  6. CYCLOBENZAPRINE [Concomitant]
     Active Substance: CYCLOBENZAPRINE
  7. TRETINOIN. [Concomitant]
     Active Substance: TRETINOIN
  8. PERCOCET [Concomitant]
     Active Substance: ACETAMINOPHEN\OXYCODONE HYDROCHLORIDE
  9. PROMETHAZINE [Concomitant]
     Active Substance: PROMETHAZINE\PROMETHAZINE HYDROCHLORIDE
  10. BENTYL [Concomitant]
     Active Substance: DICYCLOMINE HYDROCHLORIDE
  11. LORATADINE. [Concomitant]
     Active Substance: LORATADINE

REACTIONS (1)
  - Pulmonary embolism [None]

NARRATIVE: CASE EVENT DATE: 20170208
